FAERS Safety Report 6043536-2 (Version None)
Quarter: 2009Q1

REPORT INFORMATION
  Report Type: 
  Country: None (occurrence: None)
  Receive Date: 20090114
  Receipt Date: 20090114
  Transmission Date: 20090719
  Serious: Yes (Hospitalization)
  Sender: FDA-Public Use
  Company Number: None

PATIENT
  Sex: Female
  Weight: 40.4 kg

DRUGS (1)
  1. RILUZOLE [Suspect]
     Indication: OBSESSIVE-COMPULSIVE DISORDER
     Dosage: 50MG EVERY 12 HOURS PO
     Route: 048

REACTIONS (1)
  - PANCREATITIS [None]
